FAERS Safety Report 7372033-7 (Version None)
Quarter: 2011Q1

REPORT INFORMATION
  Report Type: 
  Country: None (occurrence: None)
  Receive Date: 20110324
  Receipt Date: 20110310
  Transmission Date: 20110831
  Serious: Yes (Other)
  Sender: FDA-Public Use
  Company Number: PHHY2010DE30345

PATIENT
  Sex: Male
  Weight: 122 kg

DRUGS (4)
  1. ACTOS [Concomitant]
     Indication: DIABETES MELLITUS
     Dosage: 30 MG, QD
     Route: 048
  2. INTRON A [Concomitant]
     Indication: CHRONIC MYELOID LEUKAEMIA
     Dosage: 0.3 MIO UNITSX 3 PER WEEK
     Route: 058
     Dates: start: 20060325, end: 20060523
  3. METFORMIN HCL [Concomitant]
     Indication: DIABETES MELLITUS
     Dosage: 850 MG, BID
     Route: 048
  4. GLEEVEC [Suspect]
     Indication: CHRONIC MYELOID LEUKAEMIA
     Dosage: 400 MG, DAILY
     Route: 048
     Dates: start: 20051105

REACTIONS (1)
  - RETINOPATHY [None]
